FAERS Safety Report 9057849 (Version 1)
Quarter: 2013Q1

REPORT INFORMATION
  Report Type: Spontaneous
  Country: TR (occurrence: TR)
  Receive Date: 20130204
  Receipt Date: 20130204
  Transmission Date: 20140127
  Serious: Yes (Hospitalization)
  Sender: FDA-Public Use
  Company Number: TR-AMGEN-TURSP2012048324

PATIENT
  Age: 34 Year
  Sex: Female

DRUGS (2)
  1. ENBREL [Suspect]
     Indication: RHEUMATOID ARTHRITIS
     Dosage: 50 MG, WEEKLY
     Route: 058
     Dates: start: 20120426, end: 201212
  2. PREDNOL                            /00049601/ [Concomitant]
     Indication: RHEUMATOID ARTHRITIS
     Dosage: 2 MG, 2X/DAY
     Route: 048
     Dates: start: 2010

REACTIONS (3)
  - Hypersensitivity [Recovered/Resolved]
  - Pruritus generalised [Recovered/Resolved]
  - Upper respiratory tract infection [Recovered/Resolved]
